FAERS Safety Report 8478895 (Version 10)
Quarter: 2015Q2

REPORT INFORMATION
  Report Type: Spontaneous
  Country: US (occurrence: US)
  Receive Date: 20120111
  Receipt Date: 20150420
  Transmission Date: 20150821
  Serious: Yes (Death, Hospitalization)
  Sender: FDA-Public Use
  Company Number: US-JNJFOC-20120100931

PATIENT
  Age: 2 Year
  Sex: Male

DRUGS (3)
  1. LORTAB [Suspect]
     Active Substance: ACETAMINOPHEN\HYDROCODONE BITARTRATE
     Indication: PAIN
     Dosage: 500 MG- 7.5 MG/15 ML EVERY 4 HOURS A NEEDED
     Route: 048
     Dates: start: 20100501
  2. CHILDRENS TYLENOL [Suspect]
     Active Substance: ACETAMINOPHEN
     Indication: PAIN
     Dates: start: 20100501
  3. CHILDRENS TYLENOL [Suspect]
     Active Substance: ACETAMINOPHEN
     Indication: PYREXIA
     Dates: start: 20100501

REACTIONS (8)
  - Cardiac arrest [Fatal]
  - Product contamination [Unknown]
  - Hypoglycaemia [Unknown]
  - Acute hepatic failure [Fatal]
  - Viral infection [Fatal]
  - Seizure [Unknown]
  - Haematemesis [Unknown]
  - Product measured potency issue [Unknown]

NARRATIVE: CASE EVENT DATE: 20100723
